FAERS Safety Report 5811781-4 (Version None)
Quarter: 2008Q3

REPORT INFORMATION
  Report Type: 
  Country: None (occurrence: None)
  Receive Date: 20080715
  Receipt Date: 20080715
  Transmission Date: 20090109
  Serious: Yes (Life-Threatening, Hospitalization)
  Sender: FDA-Public Use
  Company Number: None

PATIENT
  Age: 55 Year
  Sex: Female
  Weight: 48.0813 kg

DRUGS (1)
  1. SYMBICORT [Suspect]

REACTIONS (3)
  - CONTRAINDICATION TO MEDICAL TREATMENT [None]
  - MOOD SWINGS [None]
  - SUICIDAL IDEATION [None]
